FAERS Safety Report 10231062 (Version 2)
Quarter: 2014Q3

REPORT INFORMATION
  Report Type: Spontaneous
  Country: US (occurrence: US)
  Receive Date: 20140611
  Receipt Date: 20140711
  Transmission Date: 20150326
  Serious: No
  Sender: FDA-Public Use
  Company Number: US-BAYER-2014-087735

PATIENT
  Sex: Male

DRUGS (2)
  1. BETASERON [Suspect]
     Active Substance: INTERFERON BETA-1B
     Dosage: UNK
  2. BETAJECT LITE [Suspect]
     Active Substance: DEVICE
     Indication: DEVICE THERAPY
     Dosage: UNK

REACTIONS (4)
  - Device connection issue [None]
  - Injection site bruising [Recovered/Resolved]
  - Device deployment issue [None]
  - Needle issue [None]
